FAERS Safety Report 17127542 (Version 1)
Quarter: 2019Q4

REPORT INFORMATION
  Report Type: Spontaneous
  Country: US (occurrence: US)
  Receive Date: 20191209
  Receipt Date: 20191209
  Transmission Date: 20200122
  Serious: Yes (Other)
  Sender: FDA-Public Use
  Company Number: US-NVP-000039

PATIENT

DRUGS (2)
  1. SIROLIMUS. [Suspect]
     Active Substance: SIROLIMUS
     Indication: RHABDOMYOMA
     Dosage: TITRATED TO 10-15 NG/DL
     Route: 064
  2. SIROLIMUS. [Suspect]
     Active Substance: SIROLIMUS
     Indication: RHABDOMYOMA
     Route: 064

REACTIONS (4)
  - Tuberous sclerosis complex [Unknown]
  - Drug effective for unapproved indication [Unknown]
  - Foetal growth restriction [Recovered/Resolved]
  - Nodule [Unknown]
